FAERS Safety Report 7637191-5 (Version None)
Quarter: 2011Q3

REPORT INFORMATION
  Report Type: 
  Country: None (occurrence: None)
  Receive Date: 20110726
  Receipt Date: 20110712
  Transmission Date: 20111222
  Serious: Yes (Hospitalization, Other)
  Sender: FDA-Public Use
  Company Number: PHHY2011KR63179

PATIENT

DRUGS (8)
  1. CALCIUM CARBONATE [Concomitant]
     Dosage: UNK UKN, UNK
  2. TEGRETOL-XR [Suspect]
     Dosage: UNK UKN, UNK
  3. TOLTERODINE TARTRATE [Concomitant]
     Dosage: UNK UKN, UNK
  4. GABAPENTIN [Concomitant]
     Dosage: UNK UKN, UNK
  5. WELLBUTRIN SR [Concomitant]
     Dosage: UNK UKN, UNK
  6. AZATHIOPRINE [Concomitant]
     Dosage: UNK UKN, UNK
  7. BETASERON [Concomitant]
     Dosage: 8 MIU, UNK
     Dates: start: 20090202
  8. NISOLONE [Concomitant]
     Dosage: UNK UKN, UNK

REACTIONS (3)
  - BONE MARROW DISORDER [None]
  - RENAL FAILURE [None]
  - HAEMOGLOBIN DECREASED [None]
